FAERS Safety Report 8854492 (Version 1)
Quarter: 2012Q4

REPORT INFORMATION
  Report Type: 
  Country: AU (occurrence: AU)
  Receive Date: 20121023
  Receipt Date: 20121023
  Transmission Date: 20130627
  Serious: Yes (Hospitalization)
  Sender: FDA-Public Use
  Company Number: AU-PFIZER INC-2012264244

PATIENT
  Sex: Male

DRUGS (1)
  1. SINEQUAN [Suspect]
     Indication: RASH
     Dosage: 25 mg, 1x/day at night

REACTIONS (4)
  - Neuralgia [Unknown]
  - Vomiting [Unknown]
  - Headache [Unknown]
  - Off label use [Unknown]
